FAERS Safety Report 23644510 (Version 2)
Quarter: 2024Q2

REPORT INFORMATION
  Report Type: Spontaneous
  Country: US (occurrence: US)
  Receive Date: 20240318
  Receipt Date: 20240405
  Transmission Date: 20240716
  Serious: Yes (Other)
  Sender: FDA-Public Use
  Company Number: US-ELI_LILLY_AND_COMPANY-US202403003634

PATIENT
  Age: 74 Year
  Sex: Female

DRUGS (1)
  1. EMGALITY [Suspect]
     Active Substance: GALCANEZUMAB-GNLM
     Indication: Product used for unknown indication
     Dosage: 120 MG, MONTHLY (1/M)
     Route: 065

REACTIONS (14)
  - Cerebrovascular accident [Unknown]
  - Arterial occlusive disease [Unknown]
  - Brain injury [Unknown]
  - Brain neoplasm [Unknown]
  - Accident [Unknown]
  - Vision blurred [Unknown]
  - Dizziness [Unknown]
  - Gait inability [Unknown]
  - Fall [Unknown]
  - Headache [Unknown]
  - Insomnia [Unknown]
  - Decreased activity [Unknown]
  - Tooth loss [Unknown]
  - Craniofacial fracture [Unknown]

NARRATIVE: CASE EVENT DATE: 20230901
